FAERS Safety Report 17826259 (Version 1)
Quarter: 2020Q2

REPORT INFORMATION
  Report Type: Report from Study
  Country: PA (occurrence: PA)
  Receive Date: 20200527
  Receipt Date: 20200527
  Transmission Date: 20200714
  Serious: Yes (Other)
  Sender: FDA-Public Use
  Company Number: PA-INCYTE CORPORATION-2019IN007226

PATIENT

DRUGS (1)
  1. JAKAVI [Suspect]
     Active Substance: RUXOLITINIB
     Indication: PRODUCT USED FOR UNKNOWN INDICATION
     Dosage: 15 MG (TWO TABLETS IN THE MORNING AND NOT AT NIGHT)
     Route: 065

REACTIONS (6)
  - Spinal disorder [Unknown]
  - Herpes virus infection [Recovering/Resolving]
  - Diabetes mellitus [Unknown]
  - Inappropriate schedule of product administration [Unknown]
  - Blood pressure abnormal [Unknown]
  - Aortic stenosis [Unknown]
